FAERS Safety Report 4971691-1 (Version None)
Quarter: 2006Q2

REPORT INFORMATION
  Report Type: 
  Country: None (occurrence: None)
  Receive Date: 20060413
  Receipt Date: 20060215
  Transmission Date: 20061013
  Serious: Yes (Hospitalization, Other)
  Sender: FDA-Public Use
  Company Number: US-AMGEN-STX168946

PATIENT
  Sex: Male

DRUGS (1)
  1. ENBREL [Suspect]
     Indication: PSORIASIS
     Dates: start: 20030101, end: 20051110

REACTIONS (6)
  - CONVULSION [None]
  - DEMYELINATION [None]
  - MULTIPLE SCLEROSIS [None]
  - NAUSEA [None]
  - ROAD TRAFFIC ACCIDENT [None]
  - VOMITING [None]
